FAERS Safety Report 9453050 (Version 1)
Quarter: 2013Q3

REPORT INFORMATION
  Report Type: Spontaneous
  Country: FR (occurrence: FR)
  Receive Date: 20130812
  Receipt Date: 20130812
  Transmission Date: 20140515
  Serious: Yes (Death, Other)
  Sender: FDA-Public Use
  Company Number: FR-CUBIST PHARMACEUTICAL, INC.-2012S1000896

PATIENT
  Age: 65 Year
  Sex: Male
  Weight: 110 kg

DRUGS (3)
  1. CUBICIN [Suspect]
     Indication: POST PROCEDURAL INFECTION
     Dosage: 1 G, QOD
     Route: 042
     Dates: start: 20121016, end: 20121018
  2. CUBICIN [Suspect]
     Indication: MEDICAL DEVICE COMPLICATION
     Dosage: 1 G, ONCE
     Route: 042
     Dates: start: 201210, end: 201211
  3. CUBICIN [Suspect]
     Indication: OFF LABEL USE

REACTIONS (1)
  - Hallucination [Recovered/Resolved]
